FAERS Safety Report 4440555-4 (Version None)
Quarter: 2004Q3

REPORT INFORMATION
  Report Type: 
  Country: None (occurrence: None)
  Receive Date: 20040903
  Receipt Date: 20040707
  Transmission Date: 20050211
  Serious: Yes (Hospitalization)
  Sender: FDA-Public Use
  Company Number: PL-ROCHE-373707

PATIENT
  Age: 12 Year
  Sex: Female

DRUGS (35)
  1. MYCOPHENOLATE MOFETIL [Suspect]
     Route: 065
     Dates: start: 20040704, end: 20040813
  2. MYCOPHENOLATE MOFETIL [Suspect]
     Route: 065
     Dates: start: 20040813, end: 20040815
  3. MYCOPHENOLATE MOFETIL [Suspect]
     Route: 065
     Dates: start: 20040815, end: 20040821
  4. MYCOPHENOLATE MOFETIL [Suspect]
     Route: 065
     Dates: start: 20040822
  5. CYCLOSPORINE [Suspect]
     Route: 065
     Dates: start: 20040704, end: 20040708
  6. CYCLOSPORINE [Suspect]
     Dosage: 200 MG IN THE MORNING 175 MG IN THE EVENING
     Route: 065
     Dates: start: 20040709, end: 20040709
  7. CYCLOSPORINE [Suspect]
     Dosage: IN THE MORNING
     Route: 065
     Dates: start: 20040710, end: 20040710
  8. CYCLOSPORINE [Suspect]
     Dosage: 175 MG IN THE MORINING 200 MG IN THE EVENING
     Route: 065
     Dates: start: 20040711, end: 20040712
  9. CYCLOSPORINE [Suspect]
     Route: 065
     Dates: start: 20040713, end: 20040713
  10. CYCLOSPORINE [Suspect]
     Dosage: 180 MG IN THE MORNING 150 MG IN THE EVENING
     Route: 065
     Dates: start: 20040714, end: 20040714
  11. CYCLOSPORINE [Suspect]
     Route: 065
     Dates: start: 20040715, end: 20040715
  12. CYCLOSPORINE [Suspect]
     Dosage: 160MG MORNING DOSE, 140MG EVENING DOSE.
     Route: 065
     Dates: start: 20040716, end: 20040716
  13. CYCLOSPORINE [Suspect]
     Route: 065
     Dates: start: 20040717, end: 20040717
  14. CYCLOSPORINE [Suspect]
     Route: 065
     Dates: start: 20040718, end: 20040720
  15. CYCLOSPORINE [Suspect]
     Dosage: 125 MG AM AND 150 MG PM.
     Route: 065
     Dates: start: 20040721, end: 20040721
  16. CYCLOSPORINE [Suspect]
     Route: 065
     Dates: start: 20040722, end: 20040723
  17. CYCLOSPORINE [Suspect]
     Route: 065
     Dates: start: 20040724, end: 20040729
  18. CYCLOSPORINE [Suspect]
     Route: 065
     Dates: start: 20040730, end: 20040802
  19. CYCLOSPORINE [Suspect]
     Route: 065
     Dates: start: 20040803
  20. METHYLPREDNISOLONE [Suspect]
     Route: 065
     Dates: start: 20040704, end: 20040706
  21. METHYLPREDNISOLONE [Suspect]
     Dosage: DURING SURGERY
     Route: 065
     Dates: start: 20040704, end: 20040704
  22. METHYLPREDNISOLONE [Suspect]
     Dosage: TREATMENT FOR EVENT PROTEINURIA.
     Route: 065
     Dates: start: 20040707, end: 20040712
  23. METHYLPREDNISOLONE [Suspect]
     Dosage: ENTERED AS REPORTED.
     Route: 065
     Dates: start: 20040803, end: 20040807
  24. METHYLPREDNISOLONE [Suspect]
     Dosage: ENTERED AS REPORTED.
     Route: 065
     Dates: start: 20040806, end: 20040810
  25. PREDNISONE [Suspect]
     Route: 065
     Dates: start: 20040713, end: 20040719
  26. PREDNISONE [Suspect]
     Route: 065
     Dates: start: 20040720, end: 20040726
  27. PREDNISONE [Suspect]
     Route: 065
     Dates: start: 20040727, end: 20040807
  28. PREDNISONE [Suspect]
     Route: 065
     Dates: start: 20040808, end: 20040810
  29. PREDNISONE [Suspect]
     Route: 065
     Dates: start: 20040811
  30. CEFTRIAXONE [Concomitant]
     Indication: ANTIBACTERIAL PROPHYLAXIS
     Dates: start: 20040704, end: 20040712
  31. NIFEDIPINE [Concomitant]
     Dosage: ANTI-HYPERTENSIVE.
     Dates: start: 20040711, end: 20040711
  32. AMLODIPINE [Concomitant]
     Dosage: ANTI-HYPERTENSIVE.
     Dates: start: 20040711
  33. ACYCLOVIR [Concomitant]
     Indication: ANTIVIRAL PROPHYLAXIS
     Dosage: STOPPED ON THE 01 AUGUST 2004 AND GIVEN AGAIN ON 05 AUGUST 2004.
     Dates: start: 20040716, end: 20040805
  34. VARICELLA IMMUNE GLOBULIN [Concomitant]
     Indication: ANTIVIRAL PROPHYLAXIS
     Dosage: HUMAN GLOBULIN.
     Dates: start: 20040720, end: 20040720
  35. ACEBUTOLOL [Concomitant]
     Dosage: ANTI-HYPERTENSIVE.
     Dates: start: 20040723

REACTIONS (14)
  - ABDOMINAL PAIN [None]
  - CHOLECYSTITIS ACUTE [None]
  - CHOLELITHIASIS [None]
  - COMPLICATIONS OF TRANSPLANTED KIDNEY [None]
  - DISEASE RECURRENCE [None]
  - GLOMERULONEPHRITIS [None]
  - HAEMODIALYSIS [None]
  - HYPERKALAEMIA [None]
  - NEURALGIA [None]
  - OEDEMA [None]
  - OLIGURIA [None]
  - POST PROCEDURAL COMPLICATION [None]
  - PROTEINURIA [None]
  - PSYCHOGENIC PAIN DISORDER [None]
